FAERS Safety Report 9465794 (Version 2)
Quarter: 2013Q3

REPORT INFORMATION
  Report Type: Spontaneous
  Country: DK (occurrence: DK)
  Receive Date: 20130820
  Receipt Date: 20130820
  Transmission Date: 20140515
  Serious: Yes (Hospitalization)
  Sender: FDA-Public Use
  Company Number: DK-PFIZER INC-2013233611

PATIENT
  Age: 75 Year
  Sex: Female
  Weight: 60 kg

DRUGS (1)
  1. DEPO-MEDROL [Suspect]
     Indication: TEMPORAL ARTERITIS
     Dosage: 1000 MG, UNK
     Route: 042
     Dates: start: 20130808

REACTIONS (5)
  - Overdose [Unknown]
  - Tremor [Unknown]
  - Blood glucose increased [Unknown]
  - Blood pressure increased [Unknown]
  - Headache [Unknown]
